FAERS Safety Report 4304107-9 (Version None)
Quarter: 2004Q1

REPORT INFORMATION
  Report Type: 
  Country: None (occurrence: None)
  Receive Date: 20040223
  Receipt Date: 20031204
  Transmission Date: 20041129
  Serious: No
  Sender: FDA-Public Use
  Company Number: PHEH2003US11100

PATIENT
  Sex: Female

DRUGS (2)
  1. ZELNORM [Suspect]
  2. THYROID TAB [Concomitant]

REACTIONS (2)
  - ABNORMAL DREAMS [None]
  - THIRST [None]
